FAERS Safety Report 18487739 (Version 1)
Quarter: 2020Q4

REPORT INFORMATION
  Report Type: Spontaneous
  Country: CN (occurrence: CN)
  Receive Date: 20201110
  Receipt Date: 20201110
  Transmission Date: 20210114
  Serious: Yes (Hospitalization, Other)
  Sender: FDA-Public Use
  Company Number: CN-GILEAD-2020-0503243

PATIENT
  Age: 58 Year
  Sex: Male

DRUGS (1)
  1. HEPSERA [Suspect]
     Active Substance: ADEFOVIR DIPIVOXIL
     Indication: CHRONIC HEPATITIS B
     Dosage: UNK
     Route: 065
     Dates: start: 200804, end: 201804

REACTIONS (2)
  - Fanconi syndrome acquired [Recovering/Resolving]
  - Hypophosphataemic osteomalacia [Recovering/Resolving]
